FAERS Safety Report 9691943 (Version 1)
Quarter: 2013Q4

REPORT INFORMATION
  Report Type: Report from Study
  Country: US (occurrence: US)
  Receive Date: 20131118
  Receipt Date: 20131118
  Transmission Date: 20140711
  Serious: Yes (Hospitalization)
  Sender: FDA-Public Use
  Company Number: US-PFIZER INC-2013323986

PATIENT
  Age: 56 Year
  Sex: Male
  Weight: 100.6 kg

DRUGS (7)
  1. BLINDED CELECOXIB [Suspect]
     Indication: ADENOCARCINOMA OF COLON
     Dosage: 400 MG,PO QD STARTING ON DAY 1 OF CYCLE 2 OF FOLFOX, CONTINUED TO 3 YEARS
     Route: 048
     Dates: start: 20130417, end: 20130927
  2. BLINDED PLACEBO [Suspect]
     Indication: ADENOCARCINOMA OF COLON
     Dosage: 400 MG,PO QD STARTING ON DAY 1 OF CYCLE 2 OF FOLFOX, CONTINUED TO 3 YEARS
     Route: 048
     Dates: start: 20130417, end: 20130927
  3. FLUOROURACIL [Suspect]
     Indication: ADENOCARCINOMA OF COLON
     Dosage: 400 MG/M2, IVP ON DAY 1 FOLLOWED BY 2400 MG/M2 IV OVER46-48 HOURS ON DAY 1
     Route: 040
     Dates: start: 20130417, end: 20130925
  4. LEUCOVORIN CALCIUM [Suspect]
     Indication: ADENOCARCINOMA OF COLON
     Dosage: 400 MG/M2, IV OVER 2 HOURS ON DAY 1
     Route: 042
     Dates: start: 20130417, end: 20130925
  5. OXALIPLATIN [Concomitant]
     Indication: ADENOCARCINOMA OF COLON
     Dosage: 85 MG/M2,  IV OVER 2 HOURS ON DAY 1
     Route: 042
     Dates: start: 20130417
  6. K-DUR [Concomitant]
  7. NEUPOGEN [Concomitant]

REACTIONS (1)
  - Pyrexia [Recovered/Resolved]
